FAERS Safety Report 12977832 (Version 2)
Quarter: 2016Q4

REPORT INFORMATION
  Report Type: Spontaneous
  Country: DE (occurrence: DE)
  Receive Date: 20161128
  Receipt Date: 20161223
  Transmission Date: 20170207
  Serious: Yes (Other)
  Sender: FDA-Public Use
  Company Number: PHHY2016DE158555

PATIENT
  Sex: Female
  Weight: 68 kg

DRUGS (3)
  1. PROVAS [Suspect]
     Active Substance: VALSARTAN
     Dosage: UNK
     Route: 065
     Dates: start: 2016
  2. PROVAS [Suspect]
     Active Substance: VALSARTAN
     Indication: HYPERTENSION
     Dosage: 160 MG, QD
     Route: 065
     Dates: end: 201611
  3. L-THYROXIN HENNING [Concomitant]
     Active Substance: LEVOTHYROXINE SODIUM
     Indication: PRODUCT USED FOR UNKNOWN INDICATION
     Dosage: 100 UG, QD
     Route: 065

REACTIONS (7)
  - Stomatitis [Recovering/Resolving]
  - Type I hypersensitivity [Unknown]
  - Oedema mouth [Unknown]
  - Vitamin B12 decreased [Unknown]
  - Hypophagia [Recovering/Resolving]
  - Tongue discolouration [Recovering/Resolving]
  - Tongue oedema [Unknown]

NARRATIVE: CASE EVENT DATE: 20161102
